FAERS Safety Report 6611182-5 (Version None)
Quarter: 2010Q1

REPORT INFORMATION
  Report Type: 
  Country: None (occurrence: None)
  Receive Date: 20100301
  Receipt Date: 20100301
  Transmission Date: 20100710
  Serious: Yes (Other)
  Sender: FDA-Public Use
  Company Number: None

PATIENT
  Age: 64 Year
  Sex: Female
  Weight: 96.6162 kg

DRUGS (5)
  1. RISPERIDONE [Suspect]
     Indication: MENTAL DISORDER
     Dosage: 1; 2 (TABLETS) MORNING
     Dates: start: 20100213, end: 20100214
  2. BENZTROPINE MESYLATE [Suspect]
     Dosage: 1; 1 (TABLET) MORN + NIGHT
     Dates: start: 20100213, end: 20100214
  3. DIOVAN [Concomitant]
  4. HYDROCHLOROTHIAZIDE [Concomitant]
  5. CITALOPRAM HYDROB [Concomitant]

REACTIONS (1)
  - LOSS OF CONSCIOUSNESS [None]
